FAERS Safety Report 22244064 (Version 4)
Quarter: 2025Q3

REPORT INFORMATION
  Report Type: Report from Study
  Country: CA (occurrence: CA)
  Receive Date: 20230424
  Receipt Date: 20250922
  Transmission Date: 20251020
  Serious: Yes (Other)
  Sender: AUROBINDO
  Company Number: CA-AUROBINDO-AUR-APL-2023-031506

PATIENT
  Sex: Female

DRUGS (16)
  1. AMPICILLIN [Suspect]
     Active Substance: AMPICILLIN
     Indication: Escherichia infection
     Dosage: 1 GRAM, FOUR TIMES/DAY
     Route: 042
  2. AMPICILLIN [Suspect]
     Active Substance: AMPICILLIN
     Indication: Antibiotic therapy
  3. AZITHROMYCIN [Suspect]
     Active Substance: AZITHROMYCIN
     Indication: Escherichia infection
     Dosage: 1 GRAM, ONCE A DAY
     Route: 048
  4. AZITHROMYCIN [Suspect]
     Active Substance: AZITHROMYCIN
     Indication: Antibiotic therapy
  5. ATOSIBAN [Suspect]
     Active Substance: ATOSIBAN
     Indication: Infection
     Route: 065
  6. ATOSIBAN [Suspect]
     Active Substance: ATOSIBAN
     Indication: Antibiotic therapy
  7. BETAMETHASONE [Suspect]
     Active Substance: BETAMETHASONE
     Indication: Product used for unknown indication
     Dosage: 12 MILLIGRAM, ONCE A DAY
     Route: 030
  8. GENTAMICIN [Suspect]
     Active Substance: GENTAMICIN
     Indication: Escherichia infection
     Dosage: 80 MILLIGRAM, 3 TIMES A DAY
     Route: 042
  9. GENTAMICIN [Suspect]
     Active Substance: GENTAMICIN
     Indication: Antibiotic therapy
  10. DEXTROSE [Suspect]
     Active Substance: DEXTROSE MONOHYDRATE
     Indication: Product used for unknown indication
     Route: 065
  11. MAGNESIUM SULFATE [Suspect]
     Active Substance: MAGNESIUM SULFATE
     Indication: Nervous system disorder
     Route: 065
  12. MAGNESIUM SULFATE [Suspect]
     Active Substance: MAGNESIUM SULFATE
     Indication: Prophylaxis
  13. CEFAZOLIN [Suspect]
     Active Substance: CEFAZOLIN
     Indication: Infection
     Route: 065
  14. CEFAZOLIN [Suspect]
     Active Substance: CEFAZOLIN
     Indication: Antibiotic therapy
  15. AZITHROMYCIN [Suspect]
     Active Substance: AZITHROMYCIN
     Indication: Infection
     Dosage: 1 GRAM, ONCE A DAY
     Route: 048
  16. AZITHROMYCIN [Suspect]
     Active Substance: AZITHROMYCIN
     Indication: Antibiotic therapy

REACTIONS (5)
  - Delivery [Unknown]
  - Normal labour [Unknown]
  - Premature delivery [Unknown]
  - Maternal exposure during pregnancy [Unknown]
  - Product use in unapproved indication [Unknown]
